FAERS Safety Report 5935671-1 (Version None)
Quarter: 2008Q4

REPORT INFORMATION
  Report Type: 
  Country: None (occurrence: None)
  Receive Date: 20081030
  Receipt Date: 20070813
  Transmission Date: 20090506
  Serious: Yes (Other)
  Sender: FDA-Public Use
  Company Number: US-ASTRAZENECA-2007UW09668

PATIENT
  Age: 42 Year
  Sex: Male
  Weight: 118.4 kg

DRUGS (29)
  1. SEROQUEL [Suspect]
     Indication: SCHIZOPHRENIA
     Route: 048
     Dates: start: 20010328, end: 20030809
  2. SEROQUEL [Suspect]
     Route: 048
     Dates: start: 20030809
  3. SEROQUEL [Suspect]
     Dosage: 100MG - 400MG
     Route: 048
     Dates: start: 20040112, end: 20050101
  4. SEROQUEL [Suspect]
     Route: 048
     Dates: start: 20050101, end: 20051006
  5. SEROQUEL [Suspect]
     Route: 048
     Dates: start: 20050701, end: 20051006
  6. SEROQUEL [Suspect]
     Route: 048
     Dates: start: 20051006, end: 20060119
  7. SEROQUEL [Suspect]
     Route: 048
     Dates: start: 20060119, end: 20061003
  8. DEPAKOTE [Concomitant]
     Dates: start: 20030101
  9. NEURONTIN [Concomitant]
     Dates: start: 20041103, end: 20060418
  10. CLONAZEPAM [Concomitant]
     Dates: start: 20031217
  11. VALIUM [Concomitant]
     Dates: start: 20010101
  12. LEXAPRO [Concomitant]
     Dates: start: 20031022
  13. PROTONIX [Concomitant]
     Dates: start: 20030101
  14. TRAZODONE HCL [Concomitant]
     Dates: start: 20030101
  15. ADVAIR DISKUS 100/50 [Concomitant]
  16. ALBUTEROL SULFATE [Concomitant]
  17. CARISOPRODOL [Concomitant]
  18. INTERFERON [Concomitant]
  19. AMITRIPTYLINE HCL [Concomitant]
  20. TRILEPTAL [Concomitant]
     Route: 048
     Dates: start: 20050712, end: 20070116
  21. TEQUIN [Concomitant]
     Dates: start: 20060112
  22. NIASPAN [Concomitant]
     Route: 048
  23. LYRICA [Concomitant]
     Dosage: 50MG, 75MG
     Dates: start: 20060201
  24. TEMAZEPAM [Concomitant]
  25. CYMBALTA [Concomitant]
     Dates: start: 20061001
  26. ABILIFY [Concomitant]
  27. LAMICTAL [Concomitant]
     Dates: start: 20010101
  28. CELEBREX [Concomitant]
     Route: 048
     Dates: start: 20070507
  29. ZYPREXA [Concomitant]
     Dates: start: 20010101

REACTIONS (11)
  - ABDOMINAL PAIN UPPER [None]
  - CHEST PAIN [None]
  - DIABETES WITH HYPEROSMOLARITY [None]
  - DIABETIC FOOT [None]
  - DYSLIPIDAEMIA [None]
  - HEPATITIS C [None]
  - HYPERTRIGLYCERIDAEMIA [None]
  - IMPAIRED FASTING GLUCOSE [None]
  - NEUROPATHY PERIPHERAL [None]
  - PNEUMONIA [None]
  - TYPE 2 DIABETES MELLITUS [None]
